FAERS Safety Report 25431038 (Version 2)
Quarter: 2025Q2

REPORT INFORMATION
  Report Type: Spontaneous
  Country: US (occurrence: US)
  Receive Date: 20250612
  Receipt Date: 20250612
  Transmission Date: 20250716
  Serious: No
  Sender: SANDOZ
  Company Number: US-SANDOZ-SDZ2025US040878

PATIENT
  Sex: Female

DRUGS (2)
  1. ALBUTEROL SULFATE [Suspect]
     Active Substance: ALBUTEROL SULFATE
     Indication: Product used for unknown indication
     Dosage: UNK UNK, Q4H, 2 PUFFS
     Route: 065
  2. ALBUTEROL SULFATE [Suspect]
     Active Substance: ALBUTEROL SULFATE
     Dosage: UNK, Q6H
     Route: 065

REACTIONS (6)
  - Drug ineffective [Unknown]
  - Incorrect dose administered by device [Unknown]
  - Product delivery mechanism issue [Unknown]
  - Drug dose omission by device [Unknown]
  - Product use complaint [Unknown]
  - Device use issue [Unknown]

NARRATIVE: CASE EVENT DATE: 20250501
